FAERS Safety Report 6239019-7 (Version None)
Quarter: 2009Q2

REPORT INFORMATION
  Report Type: 
  Country: None (occurrence: None)
  Receive Date: 20090622
  Receipt Date: 20090615
  Transmission Date: 20091009
  Serious: Yes (Other)
  Sender: FDA-Public Use
  Company Number: B0579470A

PATIENT
  Sex: Female

DRUGS (3)
  1. CLAVAMOX [Suspect]
     Indication: OTITIS MEDIA
     Dosage: 1.2G TWICE PER DAY
     Route: 048
     Dates: start: 20090605, end: 20090608
  2. MEIACT [Suspect]
     Indication: DRUG USE FOR UNKNOWN INDICATION
     Route: 048
     Dates: start: 20090608
  3. DIAPP [Suspect]
     Indication: FEBRILE CONVULSION
     Route: 054

REACTIONS (3)
  - ERYTHEMA MULTIFORME [None]
  - EYELID OEDEMA [None]
  - RASH [None]
